FAERS Safety Report 6073150-4 (Version None)
Quarter: 2009Q1

REPORT INFORMATION
  Report Type: 
  Country: None (occurrence: None)
  Receive Date: 20090211
  Receipt Date: 20090202
  Transmission Date: 20090719
  Serious: Yes (Other)
  Sender: FDA-Public Use
  Company Number: CA-AMGEN-KDL324933

PATIENT
  Sex: Male
  Weight: 104.4 kg

DRUGS (5)
  1. ENBREL [Suspect]
     Indication: RHEUMATOID ARTHRITIS
     Dates: start: 20081001
  2. PREDNISONE TAB [Concomitant]
  3. ACTONEL [Concomitant]
  4. ASPIRIN [Concomitant]
  5. CARBACHOL [Concomitant]

REACTIONS (4)
  - BLOOD PRESSURE DECREASED [None]
  - DIZZINESS [None]
  - LOSS OF CONSCIOUSNESS [None]
  - RHEUMATOID ARTHRITIS [None]
